FAERS Safety Report 10533503 (Version 2)
Quarter: 2014Q4

REPORT INFORMATION
  Report Type: Spontaneous
  Country: JP (occurrence: JP)
  Receive Date: 20141022
  Receipt Date: 20141031
  Transmission Date: 20150529
  Serious: Yes (Other)
  Sender: FDA-Public Use
  Company Number: PHHY2014JP137113

PATIENT
  Sex: Female

DRUGS (4)
  1. OCTREOTIDE [Suspect]
     Active Substance: OCTREOTIDE
     Indication: OFF LABEL USE
  2. INSULIN [Suspect]
     Active Substance: INSULIN NOS
     Indication: PRODUCT USED FOR UNKNOWN INDICATION
     Route: 065
  3. GLUCAGON. [Concomitant]
     Active Substance: GLUCAGON
     Indication: PRODUCT USED FOR UNKNOWN INDICATION
     Route: 065
  4. OCTREOTIDE [Suspect]
     Active Substance: OCTREOTIDE
     Indication: HYPERINSULINAEMIA
     Dosage: 18 UG, QD
     Route: 058

REACTIONS (2)
  - Cholelithiasis [Unknown]
  - Diabetes mellitus [Unknown]
